FAERS Safety Report 9019425 (Version 1)
Quarter: 2013Q1

REPORT INFORMATION
  Report Type: Report from Study
  Country: US (occurrence: US)
  Receive Date: 20130118
  Receipt Date: 20130118
  Transmission Date: 20140127
  Serious: Yes (Death, Life-Threatening, Hospitalization)
  Sender: FDA-Public Use
  Company Number: US-JNJFOC-20130103149

PATIENT
  Age: 42 Year
  Sex: Female

DRUGS (15)
  1. NUCYNTA ER [Suspect]
     Indication: PRODUCT USED FOR UNKNOWN INDICATION
     Route: 048
  2. FENTANYL PATCH [Suspect]
     Indication: PRODUCT USED FOR UNKNOWN INDICATION
     Route: 062
  3. MORPHINE [Suspect]
     Indication: PRODUCT USED FOR UNKNOWN INDICATION
     Route: 065
  4. DILAUDID [Suspect]
     Indication: PRODUCT USED FOR UNKNOWN INDICATION
     Route: 065
  5. SSRI [Suspect]
     Indication: PRODUCT USED FOR UNKNOWN INDICATION
     Route: 065
  6. BENZODIAZEPINES NOS [Suspect]
     Indication: PRODUCT USED FOR UNKNOWN INDICATION
     Route: 065
  7. NSAID [Suspect]
     Indication: PRODUCT USED FOR UNKNOWN INDICATION
     Route: 065
  8. PERCOCET [Suspect]
     Indication: PRODUCT USED FOR UNKNOWN INDICATION
     Route: 065
  9. THYROID PREPARATIONS [Suspect]
     Indication: PRODUCT USED FOR UNKNOWN INDICATION
     Route: 065
  10. ANABOLIC STEROIDS [Suspect]
     Indication: PRODUCT USED FOR UNKNOWN INDICATION
     Route: 065
  11. DOXEPIN [Suspect]
     Indication: PRODUCT USED FOR UNKNOWN INDICATION
     Route: 065
  12. ANTINEOPLASTIC (UNSPECIFIED INGREDIENT) [Suspect]
     Indication: PRODUCT USED FOR UNKNOWN INDICATION
     Route: 065
  13. NAPROXEN [Suspect]
     Indication: PRODUCT USED FOR UNKNOWN INDICATION
     Route: 065
  14. UNKNOWN MEDICATION [Concomitant]
     Route: 065
  15. OXYCODONE [Concomitant]
     Route: 065

REACTIONS (19)
  - Death [Fatal]
  - Overdose [Unknown]
  - Ischaemic hepatitis [Unknown]
  - Respiratory failure [Unknown]
  - Hepatic failure [Unknown]
  - Pneumonia aspiration [Unknown]
  - Slow response to stimuli [Unknown]
  - Electrocardiogram T wave inversion [Unknown]
  - Vomiting [Unknown]
  - Grunting [Unknown]
  - Pupillary reflex impaired [Unknown]
  - Decerebration [Unknown]
  - Respiratory arrest [Unknown]
  - Muscle contracture [Unknown]
  - Poisoning [Unknown]
  - Tachycardia [Unknown]
  - Gaze palsy [Unknown]
  - Depressed level of consciousness [Unknown]
  - Mydriasis [Unknown]
